FAERS Safety Report 6274052-0 (Version None)
Quarter: 2009Q3

REPORT INFORMATION
  Report Type: 
  Country: None (occurrence: None)
  Receive Date: 20090720
  Receipt Date: 20090708
  Transmission Date: 20100115
  Serious: Yes (Hospitalization)
  Sender: FDA-Public Use
  Company Number: CH-ELI_LILLY_AND_COMPANY-CH200907001943

PATIENT
  Age: 54 Year
  Sex: Male

DRUGS (10)
  1. FLUOXETINE HCL [Suspect]
     Indication: DEPRESSION
     Dosage: UNK UNK, DAILY (1/D)
     Route: 048
     Dates: start: 20081120, end: 20081124
  2. TRIMIPRAMINE MALEATE [Concomitant]
     Indication: DEPRESSION
     Dosage: 12.5 MG, DAILY (1/D)
     Route: 048
  3. TRIMIN [Concomitant]
     Dosage: 25 MG, DAILY (1/D)
     Route: 048
  4. MIXTARD 30 HM [Concomitant]
     Dosage: UNK UNK, 2/D
  5. SIMVASTATIN [Concomitant]
     Dosage: 20 MG, DAILY (1/D)
  6. METFORMIN HCL [Concomitant]
     Dosage: 500 MG, 2/D
  7. ASPIRIN [Concomitant]
     Dosage: 100 MG, DAILY (1/D)
     Route: 048
  8. BELOC ZOK [Concomitant]
     Dosage: 100 MG, DAILY (1/D)
  9. TRIATEC COMP [Concomitant]
     Dosage: UNK UNK, DAILY (1/D)
  10. IRFEN [Concomitant]
     Dosage: 400 MG, 2/D

REACTIONS (4)
  - AUTONOMIC NERVOUS SYSTEM IMBALANCE [None]
  - DRUG INTERACTION [None]
  - DYSURIA [None]
  - SYNCOPE [None]
